FAERS Safety Report 4348082-X (Version None)
Quarter: 2004Q2

REPORT INFORMATION
  Report Type: 
  Country: None (occurrence: None)
  Receive Date: 20040422
  Receipt Date: 20040412
  Transmission Date: 20050107
  Serious: Yes (Other)
  Sender: FDA-Public Use
  Company Number: 200411748BCC

PATIENT
  Age: 2 Month
  Sex: Male
  Weight: 4.9896 kg

DRUGS (1)
  1. RID MOUSSE [Suspect]

REACTIONS (5)
  - DYSPNOEA [None]
  - LOSS OF CONSCIOUSNESS [None]
  - RASH [None]
  - SKIN DISCOLOURATION [None]
  - WHEEZING [None]
